FAERS Safety Report 23664293 (Version 2)
Quarter: 2025Q1

REPORT INFORMATION
  Report Type: Report from Study
  Country: MX (occurrence: MX)
  Receive Date: 20240322
  Receipt Date: 20250226
  Transmission Date: 20250408
  Serious: Yes (Other)
  Sender: NOVARTIS
  Company Number: MX-002147023-NVSC2024MX039337

PATIENT
  Sex: Female
  Weight: 56 kg

DRUGS (5)
  1. GILENYA [Suspect]
     Active Substance: FINGOLIMOD HYDROCHLORIDE
     Indication: Multiple sclerosis
     Dosage: 0.5 MG, QD
     Route: 048
     Dates: start: 2011, end: 2013
  2. GILENYA [Suspect]
     Active Substance: FINGOLIMOD HYDROCHLORIDE
     Dosage: 0.5 MG, QD
     Route: 048
     Dates: start: 2014, end: 201810
  3. GILENYA [Suspect]
     Active Substance: FINGOLIMOD HYDROCHLORIDE
     Route: 048
     Dates: start: 2020
  4. Vd4 [Concomitant]
     Indication: Vitamin supplementation
     Dosage: 4000 UL, QD
     Route: 048
     Dates: start: 2013
  5. FOLIC ACID [Concomitant]
     Active Substance: FOLIC ACID
     Indication: Vitamin supplementation
     Dosage: 1 DOSAGE FORM, QD
     Route: 048
     Dates: start: 201810, end: 201909

REACTIONS (6)
  - Multiple sclerosis relapse [Recovered/Resolved]
  - Muscular weakness [Recovered/Resolved]
  - Gait inability [Recovered/Resolved]
  - Diplopia [Recovered/Resolved]
  - Premature delivery [Unknown]
  - Maternal exposure timing unspecified [Unknown]

NARRATIVE: CASE EVENT DATE: 20190101
